FAERS Safety Report 8890428 (Version 1)
Quarter: 2012Q4

REPORT INFORMATION
  Report Type: 
  Country: US (occurrence: US)
  Receive Date: 20121107
  Receipt Date: 20121107
  Transmission Date: 20130627
  Serious: Yes (Other)
  Sender: FDA-Public Use
  Company Number: US-TEVA-368252USA

PATIENT
  Sex: Female

DRUGS (1)
  1. ESCITALOPRAM [Suspect]

REACTIONS (10)
  - Loss of consciousness [Unknown]
  - Thinking abnormal [Unknown]
  - Paraesthesia [Unknown]
  - Gastrointestinal pain [Unknown]
  - Formication [Unknown]
  - Blood pressure increased [Unknown]
  - Hot flush [Unknown]
  - Asthenia [Unknown]
  - Abdominal pain upper [Unknown]
  - Fatigue [Unknown]
